FAERS Safety Report 9867675 (Version 2)
Quarter: 2014Q2

REPORT INFORMATION
  Report Type: Report from Study
  Country: AU (occurrence: AU)
  Receive Date: 20140204
  Receipt Date: 20140402
  Transmission Date: 20141212
  Serious: Yes (Hospitalization)
  Sender: FDA-Public Use
  Company Number: PHHY2014AU012938

PATIENT
  Age: 76 Year
  Sex: Male

DRUGS (1)
  1. SANDOSTATIN LAR [Suspect]
     Indication: CARCINOID SYNDROME
     Dosage: 30 MG, UNK
     Route: 030

REACTIONS (5)
  - Muscle haemorrhage [Unknown]
  - Abdominal wall haematoma [Unknown]
  - Haemoglobin abnormal [Unknown]
  - International normalised ratio increased [Unknown]
  - Fall [Recovering/Resolving]
